FAERS Safety Report 5481611-1 (Version None)
Quarter: 2007Q4

REPORT INFORMATION
  Report Type: 
  Country: None (occurrence: None)
  Receive Date: 20071004
  Receipt Date: 20070920
  Transmission Date: 20080405
  Serious: Yes (Death)
  Sender: FDA-Public Use
  Company Number: 2007SP003286

PATIENT
  Age: 81 Year
  Sex: Female

DRUGS (4)
  1. BROVANA [Suspect]
     Indication: CHRONIC OBSTRUCTIVE PULMONARY DISEASE
     Dosage: BID; INHALATION
     Route: 055
     Dates: start: 20070101, end: 20070101
  2. MORPHINE [Concomitant]
  3. QVAR 40 [Concomitant]
  4. OXYGEN [Concomitant]

REACTIONS (4)
  - CARDIAC ARREST [None]
  - CHRONIC OBSTRUCTIVE PULMONARY DISEASE [None]
  - CONDITION AGGRAVATED [None]
  - OEDEMA PERIPHERAL [None]
